FAERS Safety Report 7423318 (Version 25)
Quarter: 2012Q4

REPORT INFORMATION
  Report Type: 
  Country: CA (occurrence: CA)
  Receive Date: 20100617
  Receipt Date: 20120906
  Transmission Date: 20130627
  Serious: Yes (Death, Hospitalization, Other)
  Sender: FDA-Public Use
  Company Number: PHHY2009CA28627

PATIENT
  Age: 69 Year
  Sex: Male

DRUGS (6)
  1. SANDOSTATIN LAR [Suspect]
     Indication: CARCINOID SYNDROME
     Dosage: 30 mg, every 4 weeks
     Route: 030
     Dates: start: 20090609
  2. SANDOSTATIN LAR [Suspect]
     Dosage: 30 mg, QMO
     Route: 030
  3. SANDOSTATIN LAR [Suspect]
     Dosage: 30 mg every 4 weeks
     Route: 030
  4. SANDOSTATIN LAR [Suspect]
     Dosage: 30 mg, every 3 weeks
     Route: 030
     Dates: end: 20120716
  5. RADIOTHERAPY [Concomitant]
  6. ASPIRIN [Concomitant]

REACTIONS (39)
  - Death [Fatal]
  - Pain [Unknown]
  - Blood pressure increased [Unknown]
  - Poor peripheral circulation [Unknown]
  - Peripheral coldness [Unknown]
  - Hypoaesthesia [Unknown]
  - Skin ulcer [Recovered/Resolved]
  - Vertigo [Unknown]
  - Hip fracture [Unknown]
  - Cellulitis [Not Recovered/Not Resolved]
  - Erythema [Not Recovered/Not Resolved]
  - Scab [Recovering/Resolving]
  - Diarrhoea [Unknown]
  - Abdominal pain [Unknown]
  - Neoplasm [Unknown]
  - Nasopharyngitis [Unknown]
  - Oropharyngeal pain [Unknown]
  - Cough [Unknown]
  - Muscle spasms [Unknown]
  - Pain in extremity [Unknown]
  - Fall [Unknown]
  - Disorientation [Unknown]
  - Obstruction [Unknown]
  - Oedema peripheral [Not Recovered/Not Resolved]
  - Weight decreased [Unknown]
  - Arthralgia [Unknown]
  - Proctalgia [Unknown]
  - Visual impairment [Unknown]
  - Balance disorder [Unknown]
  - Hearing impaired [Unknown]
  - Carotid artery occlusion [Unknown]
  - Pruritus [Unknown]
  - Rash pruritic [Unknown]
  - Dizziness [Unknown]
  - Abdominal discomfort [Unknown]
  - Flatulence [Unknown]
  - Abdominal distension [Unknown]
  - Abnormal weight gain [Unknown]
  - Fluid retention [Unknown]
